FAERS Safety Report 5330235-5 (Version None)
Quarter: 2007Q2

REPORT INFORMATION
  Report Type: 
  Country: None (occurrence: None)
  Receive Date: 20070521
  Receipt Date: 20070510
  Transmission Date: 20071010
  Serious: Yes (Other)
  Sender: FDA-Public Use
  Company Number: AU-SANOFI-SYNTHELABO-A01200704946

PATIENT
  Age: 46 Year
  Sex: Female

DRUGS (3)
  1. ALCOHOL [Suspect]
     Indication: DRUG USE FOR UNKNOWN INDICATION
     Dosage: 6 BEERS ONCE
     Route: 048
     Dates: start: 20060220, end: 20060220
  2. ANTENEX [Suspect]
     Indication: ANXIETY DISORDER
     Route: 048
     Dates: start: 20060115
  3. STILNOX [Suspect]
     Indication: SLEEP DISORDER
     Dosage: 10 MG
     Route: 048

REACTIONS (4)
  - ABNORMAL SLEEP-RELATED EVENT [None]
  - AMNESIA [None]
  - ROAD TRAFFIC ACCIDENT [None]
  - SLEEP WALKING [None]
